FAERS Safety Report 8500376-X (Version None)
Quarter: 2012Q3

REPORT INFORMATION
  Report Type: 
  Country: None (occurrence: None)
  Receive Date: 20120705
  Receipt Date: 20120705
  Transmission Date: 20120928
  Serious: Yes (Disabling)
  Sender: FDA-Public Use
  Company Number: None

PATIENT
  Sex: Female
  Weight: 79.8331 kg

DRUGS (2)
  1. OXAPROZIN [Suspect]
     Indication: DYSPEPSIA
     Dosage: 1 TABLET, TWICE A DAY, PO
     Route: 048
     Dates: start: 20031120, end: 20060626
  2. OMEPRAZOLE [Suspect]
     Indication: GASTROOESOPHAGEAL REFLUX DISEASE
     Dosage: 1 CAPSULE, ONCE A DAY, PO
     Route: 048

REACTIONS (6)
  - BONE DENSITY DECREASED [None]
  - DIZZINESS [None]
  - MUSCULAR WEAKNESS [None]
  - HEAD TITUBATION [None]
  - LARYNGOSPASM [None]
  - HEART RATE INCREASED [None]
